FAERS Safety Report 5895667-5 (Version None)
Quarter: 2008Q3

REPORT INFORMATION
  Report Type: 
  Country: None (occurrence: None)
  Receive Date: 20080924
  Receipt Date: 20010105
  Transmission Date: 20090109
  Serious: Yes (Other)
  Sender: FDA-Public Use
  Company Number: US-BAYER-200002659BWH

PATIENT
  Age: 23 Year
  Sex: Male

DRUGS (3)
  1. CIPRO [Suspect]
     Indication: URINARY TRACT INFECTION
     Route: 048
  2. DEPAKOTE [Concomitant]
     Route: 048
  3. TEGRETOL [Concomitant]
     Route: 048

REACTIONS (2)
  - CONVULSION [None]
  - DRUG LEVEL DECREASED [None]
